FAERS Safety Report 8137317-3 (Version None)
Quarter: 2012Q1

REPORT INFORMATION
  Report Type: 
  Country: None (occurrence: None)
  Receive Date: 20120210
  Receipt Date: 20120130
  Transmission Date: 20120608
  Serious: Yes (Hospitalization)
  Sender: FDA-Public Use
  Company Number: 2012AP000056

PATIENT
  Age: 69 Year
  Sex: Male

DRUGS (13)
  1. PREDNISOLONE [Suspect]
     Dosage: 5 MG;PO
     Route: 048
  2. CALCICHEW D3 (LEKOVIT CA) [Concomitant]
  3. PRIMIDONE [Concomitant]
  4. TOLTERODINE TARTRATE [Concomitant]
  5. ADALAT [Concomitant]
  6. FLUTICASONE PROPIONATE [Concomitant]
  7. ATORVASTATIN [Concomitant]
  8. FUROSEMIDE [Concomitant]
  9. METFORMIN HCL [Concomitant]
  10. ALENDRONATE SODIUM [Suspect]
     Dosage: 70 MG;PO
     Route: 048
     Dates: start: 20110101
  11. GLICLAZIDE (GLICLAZIDE) [Concomitant]
  12. AMINOPHYLLIN [Concomitant]
  13. LANSOPRAZOLE [Concomitant]

REACTIONS (5)
  - GASTRIC ULCER [None]
  - GASTRITIS [None]
  - OESOPHAGEAL ULCER [None]
  - WEIGHT DECREASED [None]
  - GASTROOESOPHAGEAL REFLUX DISEASE [None]
